FAERS Safety Report 8866459 (Version 1)
Quarter: 2012Q4

REPORT INFORMATION
  Report Type: 
  Country: DE (occurrence: DE)
  Receive Date: 20121025
  Receipt Date: 20121025
  Transmission Date: 20130627
  Serious: Yes (Hospitalization)
  Sender: FDA-Public Use
  Company Number: DE-MERCK-1210DEU006699

PATIENT
  Age: 31 Year
  Sex: Male
  Weight: 85 kg

DRUGS (4)
  1. SYCREST [Suspect]
     Indication: BIPOLAR I DISORDER
     Dosage: 5 mg, UNK
     Dates: start: 20120802, end: 20120821
  2. OLANZAPINE [Concomitant]
     Indication: BIPOLAR I DISORDER
     Dosage: 10 mg, qd
     Route: 048
     Dates: start: 20120118, end: 20120802
  3. OLANZAPINE [Concomitant]
     Dosage: 5 mg, UNK
     Route: 048
     Dates: start: 20120803, end: 20120809
  4. LAMOTRIGINE [Concomitant]
     Indication: BIPOLAR I DISORDER
     Dosage: 100 mg, qd
     Route: 048
     Dates: start: 20100118

REACTIONS (2)
  - Acute psychosis [Recovered/Resolved]
  - Drug ineffective [Recovered/Resolved]
